FAERS Safety Report 5275609-6 (Version None)
Quarter: 2007Q1

REPORT INFORMATION
  Report Type: 
  Country: None (occurrence: None)
  Receive Date: 20070326
  Receipt Date: 20070314
  Transmission Date: 20070707
  Serious: Yes (Other)
  Sender: FDA-Public Use
  Company Number: PHBS2007IE04799

PATIENT

DRUGS (2)
  1. TOBI [Suspect]
     Route: 065
  2. BRONCHODILATORS [Concomitant]
     Route: 065

REACTIONS (2)
  - CHEST DISCOMFORT [None]
  - WHEEZING [None]
